FAERS Safety Report 9190393 (Version 3)
Quarter: 2013Q3

REPORT INFORMATION
  Report Type: Spontaneous
  Country: CA (occurrence: CA)
  Receive Date: 20130326
  Receipt Date: 20130711
  Transmission Date: 20140515
  Serious: Yes (Hospitalization, Other)
  Sender: FDA-Public Use
  Company Number: CA-AMGEN-CANSP2013018425

PATIENT
  Age: 81 Year
  Sex: Female
  Weight: 61.36 kg

DRUGS (2)
  1. PROLIA [Suspect]
     Indication: OSTEOPOROSIS POSTMENOPAUSAL
     Dosage: 60 MG, UNK
     Dates: start: 20111214
  2. PROLIA [Suspect]

REACTIONS (11)
  - Red blood cell count decreased [Not Recovered/Not Resolved]
  - Hypertension [Unknown]
  - Colon cancer [Not Recovered/Not Resolved]
  - Pleural effusion [Not Recovered/Not Resolved]
  - Localised intraabdominal fluid collection [Not Recovered/Not Resolved]
  - Pericardial effusion [Not Recovered/Not Resolved]
  - Dysstasia [Unknown]
  - Gastrooesophageal reflux disease [Unknown]
  - Anaemia [Unknown]
  - Feeling of body temperature change [Unknown]
  - Fatigue [Unknown]
